FAERS Safety Report 4361909-0 (Version None)
Quarter: 2004Q2

REPORT INFORMATION
  Report Type: 
  Country: None (occurrence: None)
  Receive Date: 20040521
  Receipt Date: 20031203
  Transmission Date: 20050107
  Serious: Yes (Other)
  Sender: FDA-Public Use
  Company Number: US-GLAXOSMITHKLINE-A0441775A

PATIENT
  Age: 42 Year
  Sex: Female

DRUGS (2)
  1. WELLBUTRIN [Suspect]
     Dosage: 150MG PER DAY
     Route: 048
     Dates: start: 20031116, end: 20031126
  2. CELEXA [Concomitant]

REACTIONS (8)
  - AMNESIA [None]
  - CONVULSION [None]
  - EPISTAXIS [None]
  - FALL [None]
  - PERIORBITAL HAEMATOMA [None]
  - TOOTH FRACTURE [None]
  - TOOTH INJURY [None]
  - TOOTHACHE [None]
